FAERS Safety Report 5244139-X (Version None)
Quarter: 2007Q1

REPORT INFORMATION
  Report Type: 
  Country: None (occurrence: None)
  Receive Date: 20070216
  Receipt Date: 20070201
  Transmission Date: 20070707
  Serious: Yes (Hospitalization, Disabling)
  Sender: FDA-Public Use
  Company Number: 2007RR-05630

PATIENT
  Age: 46 Year
  Sex: Male

DRUGS (4)
  1. METFORMIN HCL [Suspect]
     Indication: INTENTIONAL OVERDOSE
     Dosage: 56 G
  2. RAMIPRIL [Suspect]
     Indication: INTENTIONAL OVERDOSE
     Dosage: 35 MG
  3. ALCOHOL (ALCOHOL) [Suspect]
     Indication: INTENTIONAL OVERDOSE
     Dosage: 500 ML
  4. NORADRENALINE [Concomitant]

REACTIONS (17)
  - ABDOMINAL PAIN LOWER [None]
  - APNOEA [None]
  - BODY TEMPERATURE DECREASED [None]
  - CARDIAC ARREST [None]
  - COMPARTMENT SYNDROME [None]
  - DEHYDRATION [None]
  - DIARRHOEA [None]
  - HAEMODIALYSIS [None]
  - HYPOTENSION [None]
  - LACTIC ACIDOSIS [None]
  - LEG AMPUTATION [None]
  - METABOLIC ACIDOSIS [None]
  - MULTIPLE DRUG OVERDOSE INTENTIONAL [None]
  - PALLOR [None]
  - PARTIAL SEIZURES [None]
  - RHABDOMYOLYSIS [None]
  - VOMITING [None]
